FAERS Safety Report 18522968 (Version 1)
Quarter: 2020Q4

REPORT INFORMATION
  Report Type: Spontaneous
  Country: US (occurrence: US)
  Receive Date: 20201119
  Receipt Date: 20201119
  Transmission Date: 20210114
  Serious: Yes (Life-Threatening, Disabling)
  Sender: FDA-Public Use
  Company Number: None

PATIENT
  Age: 41 Year
  Sex: Female
  Weight: 64.35 kg

DRUGS (4)
  1. STELARA [Suspect]
     Active Substance: USTEKINUMAB
     Indication: CROHN^S DISEASE
     Dosage: ?          OTHER STRENGTH:UNKNOWN;OTHER FREQUENCY:INJECTION;?
     Route: 042
     Dates: start: 20170515, end: 20181207
  2. PROPRANOLOL [Concomitant]
     Active Substance: PROPRANOLOL HYDROCHLORIDE
  3. AMITRIPTYLINE [Concomitant]
     Active Substance: AMITRIPTYLINE
  4. LION^S MANE [Concomitant]

REACTIONS (11)
  - Product complaint [None]
  - Impaired work ability [None]
  - Vertigo [None]
  - Memory impairment [None]
  - Dyspnoea [None]
  - Weight increased [None]
  - Neuropathy peripheral [None]
  - Immune-mediated adverse reaction [None]
  - Fatigue [None]
  - Chronic inflammatory demyelinating polyradiculoneuropathy [None]
  - Asthenia [None]

NARRATIVE: CASE EVENT DATE: 20170515
